FAERS Safety Report 9657096 (Version 5)
Quarter: 2015Q1

REPORT INFORMATION
  Report Type: Spontaneous
  Country: US (occurrence: US)
  Receive Date: 20131030
  Receipt Date: 20150316
  Transmission Date: 20150721
  Serious: Yes (Hospitalization, Other)
  Sender: FDA-Public Use
  Company Number: US-009507513-1310USA010695

PATIENT
  Sex: Female
  Weight: 96.15 kg

DRUGS (8)
  1. ALENDRONATE SODIUM. [Suspect]
     Active Substance: ALENDRONATE SODIUM
     Indication: OSTEOPENIA
     Dosage: 70 MG, QW
     Route: 048
     Dates: start: 20080901, end: 200811
  2. OMEGA-3 MARINE TRIGLYCERIDES [Concomitant]
     Active Substance: FISH OIL
     Dosage: 1200 MG, QD
     Dates: start: 1995
  3. FOSAMAX [Suspect]
     Active Substance: ALENDRONATE SODIUM
     Indication: OSTEOPENIA
     Dosage: 70 MG, QW
     Route: 048
     Dates: start: 199610, end: 200901
  4. CENTRUM SILVER [Concomitant]
     Active Substance: VITAMINS
     Dosage: 1 DF, UNK
     Dates: start: 1995
  5. PROTONIX [Concomitant]
     Active Substance: PANTOPRAZOLE SODIUM
     Dosage: UNK
     Dates: start: 1995
  6. CHOLECALCIFEROL [Concomitant]
     Active Substance: CHOLECALCIFEROL
     Dosage: UNK, QD
     Dates: start: 1995
  7. LEVOTHYROXINE SODIUM. [Concomitant]
     Active Substance: LEVOTHYROXINE SODIUM
     Indication: AUTOIMMUNE THYROIDITIS
     Dosage: 150-200 MCG, QD
     Dates: start: 1981
  8. OS-CAL (CALCIUM CARBONATE) [Concomitant]
     Dosage: 500 MG, BID
     Dates: start: 1995

REACTIONS (49)
  - Anaemia [Unknown]
  - Knee arthroplasty [Unknown]
  - Breast lump removal [Unknown]
  - Hypothyroidism [Unknown]
  - Thoracic vertebral fracture [Unknown]
  - Anxiety [Unknown]
  - Coronary arterial stent insertion [Unknown]
  - Pulmonary embolism [Unknown]
  - Rotator cuff repair [Unknown]
  - Vitamin D deficiency [Unknown]
  - Cataract operation [Unknown]
  - International normalised ratio increased [Unknown]
  - Intramedullary rod insertion [Unknown]
  - Femur fracture [Unknown]
  - Knee arthroplasty [Unknown]
  - Oral surgery [Unknown]
  - Polyarthritis [Not Recovered/Not Resolved]
  - Arthropathy [Not Recovered/Not Resolved]
  - Tonsillectomy [Unknown]
  - Subarachnoid haemorrhage [Unknown]
  - Rotator cuff repair [Unknown]
  - Biopsy breast [Unknown]
  - Allergy to chemicals [Unknown]
  - Facial bones fracture [Unknown]
  - Dental implantation [Unknown]
  - Herpes zoster [Unknown]
  - Gastrooesophageal reflux disease [Unknown]
  - Intramedullary rod insertion [Unknown]
  - Shoulder arthroplasty [Unknown]
  - Shoulder arthroplasty [Unknown]
  - Sinusitis [Unknown]
  - Deep vein thrombosis [Unknown]
  - Tooth extraction [Unknown]
  - Deep vein thrombosis [Unknown]
  - Myalgia [Unknown]
  - Femur fracture [Unknown]
  - Intraductal proliferative breast lesion [Unknown]
  - Vena cava filter insertion [Unknown]
  - Joint dislocation [Unknown]
  - Spinal compression fracture [Unknown]
  - Periodontal operation [Unknown]
  - Atelectasis [Unknown]
  - Neck pain [Unknown]
  - Angioedema [Unknown]
  - Fall [Unknown]
  - Hyperlipidaemia [Unknown]
  - Cataract operation [Unknown]
  - Osteoarthritis [Unknown]
  - Drug hypersensitivity [Unknown]

NARRATIVE: CASE EVENT DATE: 1996
